FAERS Safety Report 8550418 (Version 2)
Quarter: 2013Q1

REPORT INFORMATION
  Report Type: Spontaneous
  Country: US (occurrence: US)
  Receive Date: 20120507
  Receipt Date: 20130201
  Transmission Date: 20140127
  Serious: No
  Sender: FDA-Public Use
  Company Number: US-B.I. PHARMACEUTICALS,INC./RIDGEFIELD-2012-BP-09810BP

PATIENT
  Sex: Female

DRUGS (4)
  1. PRADAXA [Suspect]
     Indication: THROMBOSIS PROPHYLAXIS
     Dosage: 150 MG
     Route: 048
     Dates: start: 201204
  2. PRADAXA [Suspect]
     Indication: DEEP VEIN THROMBOSIS
  3. FLEXERIL [Concomitant]
     Indication: MUSCLE SPASMS
  4. HYDROCODONE [Concomitant]
     Indication: PAIN IN EXTREMITY

REACTIONS (8)
  - Palpitations [Not Recovered/Not Resolved]
  - Off label use [Unknown]
  - Local swelling [Not Recovered/Not Resolved]
  - Pain [Not Recovered/Not Resolved]
  - Contusion [Not Recovered/Not Resolved]
  - Abdominal pain [Recovered/Resolved]
  - Fatigue [Recovered/Resolved]
  - Diarrhoea [Recovered/Resolved]
